FAERS Safety Report 19888959 (Version 1)
Quarter: 2021Q3

REPORT INFORMATION
  Report Type: Spontaneous
  Country: US (occurrence: US)
  Receive Date: 20210927
  Receipt Date: 20210927
  Transmission Date: 20211014
  Serious: Yes (Other)
  Sender: FDA-Public Use
  Company Number: None

PATIENT
  Age: 42 Year
  Sex: Male
  Weight: 80.29 kg

DRUGS (3)
  1. REGEN?COV [Suspect]
     Active Substance: CASIRIVIMAB\IMDEVIMAB
     Indication: SEIZURE
  2. REGEN?COV [Suspect]
     Active Substance: CASIRIVIMAB\IMDEVIMAB
     Indication: TACHYCARDIA
     Dosage: ?          OTHER DOSE:600/600MG IN 10ML;?
     Route: 042
  3. REGEN?COV [Suspect]
     Active Substance: CASIRIVIMAB\IMDEVIMAB
     Indication: LOSS OF CONSCIOUSNESS

REACTIONS (6)
  - Syncope [None]
  - Nausea [None]
  - Heart rate decreased [None]
  - Seizure [None]
  - Fatigue [None]
  - Blood pressure decreased [None]

NARRATIVE: CASE EVENT DATE: 20210926
